FAERS Safety Report 9794635 (Version 2)
Quarter: 2014Q1

REPORT INFORMATION
  Report Type: Spontaneous
  Country: US (occurrence: US)
  Receive Date: 20140102
  Receipt Date: 20140204
  Transmission Date: 20141002
  Serious: Yes (Hospitalization, Other)
  Sender: FDA-Public Use
  Company Number: US-009507513-1312USA012662

PATIENT
  Sex: 0

DRUGS (4)
  1. PEGINTRON [Suspect]
     Indication: HEPATITIS C VIRUS TEST POSITIVE
  2. VICTRELIS [Suspect]
     Indication: HEPATITIS C VIRUS TEST POSITIVE
     Route: 048
  3. REBETOL [Suspect]
     Indication: HEPATITIS C VIRUS TEST POSITIVE
     Route: 048
  4. TELAPREVIR [Suspect]
     Indication: HEPATITIS C VIRUS TEST POSITIVE

REACTIONS (1)
  - Pancytopenia [Unknown]
